FAERS Safety Report 10476682 (Version 1)
Quarter: 2014Q3

REPORT INFORMATION
  Report Type: Spontaneous
  Country: DE (occurrence: None)
  Receive Date: 20140923
  Receipt Date: 20140923
  Transmission Date: 20150326
  Serious: Yes (Death)
  Sender: FDA-Public Use
  Company Number: DE-DEXPHARM-20140601

PATIENT
  Sex: Female

DRUGS (1)
  1. ZOPICLONE [Suspect]
     Active Substance: ZOPICLONE
     Dosage: DOSAGE TEXT: 300

REACTIONS (3)
  - Completed suicide [None]
  - Intentional overdose [None]
  - Drug interaction [None]

NARRATIVE: CASE EVENT DATE: 20130516
